FAERS Safety Report 8534508-4 (Version None)
Quarter: 2012Q3

REPORT INFORMATION
  Report Type: 
  Country: None (occurrence: None)
  Receive Date: 20120724
  Receipt Date: 20120713
  Transmission Date: 20120928
  Serious: Yes (Hospitalization, Other)
  Sender: FDA-Public Use
  Company Number: JP-UCBSA-060887

PATIENT
  Age: 42 Year
  Sex: Female

DRUGS (15)
  1. CIMZIA [Suspect]
     Indication: RHEUMATOID ARTHRITIS
     Route: 058
     Dates: start: 20120116, end: 20120620
  2. METHOTREXATE [Suspect]
     Route: 048
     Dates: start: 20120118, end: 20120201
  3. METHOTREXATE [Suspect]
     Route: 048
     Dates: start: 20120106, end: 20120118
  4. FOLIC ACID [Concomitant]
     Dates: start: 20111209
  5. CIMZIA [Suspect]
     Route: 058
     Dates: start: 20111206, end: 20120116
  6. METHOTREXATE [Suspect]
     Indication: RHEUMATOID ARTHRITIS
     Route: 048
     Dates: start: 20120201
  7. DIFLUPREDNATE [Concomitant]
     Dosage: PRN QS
     Dates: start: 20111122
  8. PREDNISOLONE [Concomitant]
     Dosage: TOTAL DAILY DOSE:2.5 MG
     Dates: start: 20120316, end: 20120425
  9. METOCLOPRAMIDE [Concomitant]
     Dosage: DAILY DOSE : 5 MG
     Dates: start: 20120301
  10. SENNOSIDE [Concomitant]
     Dates: start: 20120227
  11. LANSOPRAZOLE [Concomitant]
     Dates: start: 20111207
  12. METHOTREXATE [Suspect]
     Route: 048
     Dates: start: 20111221, end: 20120106
  13. METHOTREXATE [Suspect]
     Route: 048
     Dates: start: 20111207, end: 20111221
  14. PREDNISOLONE [Concomitant]
     Dosage: TOTAL DAILY DOSE: 2 MG
     Dates: start: 20120426
  15. LOXOPROFEN SODIUM HYDRATE [Concomitant]
     Dosage: TOTAL DAILY DOSE:120 MG
     Dates: start: 20120130

REACTIONS (1)
  - CERVIX CARCINOMA [None]
